FAERS Safety Report 18723136 (Version 1)
Quarter: 2021Q1

REPORT INFORMATION
  Report Type: Spontaneous
  Country: US (occurrence: US)
  Receive Date: 20210108
  Receipt Date: 20210108
  Transmission Date: 20210419
  Serious: Yes (Hospitalization)
  Sender: FDA-Public Use
  Company Number: None

PATIENT
  Sex: Male
  Weight: 111.7 kg

DRUGS (16)
  1. TRELEGY ELLIPTA [Concomitant]
     Active Substance: FLUTICASONE FUROATE\UMECLIDINIUM BROMIDE\VILANTEROL TRIFENATATE
  2. METOPROLOL. [Concomitant]
     Active Substance: METOPROLOL
  3. RANOLAZINE. [Concomitant]
     Active Substance: RANOLAZINE
  4. TAMSULOSIN [Concomitant]
     Active Substance: TAMSULOSIN
  5. BAMLANIVIMAB FOR EUA [Suspect]
     Active Substance: BAMLANIVIMAB
     Route: 042
     Dates: start: 20201223, end: 20201223
  6. CLOPIDOGREL [Concomitant]
     Active Substance: CLOPIDOGREL BISULFATE
  7. FUROSEMIDE. [Concomitant]
     Active Substance: FUROSEMIDE
  8. NITROGLYCERIN SL [Concomitant]
     Active Substance: NITROGLYCERIN
  9. ALBUTEROL. [Concomitant]
     Active Substance: ALBUTEROL
  10. BENZONATATE. [Concomitant]
     Active Substance: BENZONATATE
  11. GABAPENTIN. [Concomitant]
     Active Substance: GABAPENTIN
  12. RIVAROXABAN [Concomitant]
     Active Substance: RIVAROXABAN
  13. CITALOPRAM [Concomitant]
     Active Substance: CITALOPRAM HYDROBROMIDE
  14. PREDNISONE. [Concomitant]
     Active Substance: PREDNISONE
  15. GUAIFENESIN?PSEUDOEPHEDRINE [Concomitant]
     Active Substance: GUAIFENESIN\PSEUDOEPHEDRINE HYDROCHLORIDE
  16. ISOSORBIDE. [Concomitant]
     Active Substance: ISOSORBIDE

REACTIONS (4)
  - Sepsis [None]
  - Dyspnoea exertional [None]
  - Pneumonia [None]
  - Oxygen saturation decreased [None]
